FAERS Safety Report 15021348 (Version 1)
Quarter: 2018Q2

REPORT INFORMATION
  Report Type: Spontaneous
  Country: US (occurrence: US)
  Receive Date: 20180618
  Receipt Date: 20180618
  Transmission Date: 20180711
  Serious: No
  Sender: FDA-Public Use
  Company Number: US-GALDERMA-US18002992

PATIENT
  Age: 14 Year
  Sex: Male

DRUGS (14)
  1. PROACTIV GENTLE FORMULA CLARIFYING TONER [Concomitant]
     Indication: ACNE
     Route: 061
     Dates: start: 20170624
  2. PROACTIV GENTLE FORMULA CLARIFYING DAY LOTION [Concomitant]
     Indication: ACNE
     Route: 061
     Dates: start: 20170624
  3. PROACTIV SOLUTION BLACKHEAD DISSOLVING [Concomitant]
     Active Substance: SALICYLIC ACID
     Indication: ACNE
     Route: 061
     Dates: start: 20170624
  4. PROACTIV SKIN PURIFYING MASK [Concomitant]
     Active Substance: SULFUR
     Indication: ACNE
     Route: 061
     Dates: start: 20170624
  5. PROACTIV GENTLE FORMULA CLARIFYING NIGHT LOTION [Concomitant]
     Indication: ACNE
     Route: 061
     Dates: start: 20170624
  6. PROACTIV ADVANCED DARK SPOT CORRECTING SERUM [Concomitant]
     Active Substance: HYDROQUINONE
     Indication: ACNE
     Route: 061
     Dates: start: 20170624
  7. PROACTIV MD ADAPALENE ACNE TREATMENT [Suspect]
     Active Substance: ADAPALENE
     Indication: ACNE
     Dosage: 0.1%
     Route: 061
     Dates: start: 20170624
  8. PROACTIV DEEP CLEANSING WASH [Concomitant]
     Active Substance: SALICYLIC ACID
     Indication: ACNE
     Route: 061
     Dates: start: 20170624
  9. PROACTIV GENTLE FORMULA CLARIFYING CLEANSER [Concomitant]
     Active Substance: SALICYLIC ACID
     Indication: ACNE
     Route: 061
     Dates: start: 20170624
  10. CLARITIN [Concomitant]
     Active Substance: LORATADINE
  11. PROACTIV SOLUTION DAILY PROTECTION PLUS SUNSCREEN SPF 30 [Suspect]
     Active Substance: AVOBENZONE\HOMOSALATE\OCTINOXATE\OCTISALATE\OXYBENZONE
     Indication: ACNE
     Route: 061
     Dates: start: 20170624
  12. ALBUTEROL. [Concomitant]
     Active Substance: ALBUTEROL
  13. PROACTIV MD DEEP CLEANSING FACE WASH [Concomitant]
     Active Substance: COSMETICS
     Indication: ACNE
     Route: 061
     Dates: start: 20170624
  14. PROACTIV MD BALANCING TONER [Concomitant]
     Active Substance: COSMETICS
     Indication: ACNE
     Route: 061
     Dates: start: 20170624

REACTIONS (3)
  - Drug ineffective [Not Recovered/Not Resolved]
  - Rash papular [Not Recovered/Not Resolved]
  - Skin exfoliation [Not Recovered/Not Resolved]

NARRATIVE: CASE EVENT DATE: 201707
